FAERS Safety Report 24948885 (Version 1)
Quarter: 2025Q1

REPORT INFORMATION
  Report Type: Spontaneous
  Country: FR (occurrence: FR)
  Receive Date: 20250210
  Receipt Date: 20250210
  Transmission Date: 20250409
  Serious: Yes (Hospitalization)
  Sender: JUBILANT
  Company Number: FR-JUBILANT CADISTA PHARMACEUTICALS-2025JUB00011

PATIENT
  Age: 52 Year
  Sex: Female

DRUGS (6)
  1. CARBAMAZEPINE [Suspect]
     Active Substance: CARBAMAZEPINE
     Indication: Temporal lobe epilepsy
     Dosage: 400 MG, 1X/DAY
  2. CARBAMAZEPINE [Suspect]
     Active Substance: CARBAMAZEPINE
  3. PERAMPANEL [Suspect]
     Active Substance: PERAMPANEL
     Indication: Temporal lobe epilepsy
     Dosage: 8 MG, 1X/DAY
  4. PERAMPANEL [Suspect]
     Active Substance: PERAMPANEL
  5. CENOBAMATE [Suspect]
     Active Substance: CENOBAMATE
     Indication: Temporal lobe epilepsy
     Dosage: 100 MG, 1X/DAY
  6. CENOBAMATE [Suspect]
     Active Substance: CENOBAMATE

REACTIONS (4)
  - Bradycardia [Recovered/Resolved]
  - Mydriasis [Recovered/Resolved]
  - Coma [Recovered/Resolved]
  - Toxicity to various agents [Recovered/Resolved]
